FAERS Safety Report 9306171 (Version 2)
Quarter: 2013Q2

REPORT INFORMATION
  Report Type: Spontaneous
  Country: US (occurrence: US)
  Receive Date: 20130523
  Receipt Date: 20130621
  Transmission Date: 20140414
  Serious: Yes (Other)
  Sender: FDA-Public Use
  Company Number: US-SANOFI-AVENTIS-2013SA052130

PATIENT
  Age: 21 Year
  Sex: Female

DRUGS (7)
  1. LANTUS SOLOSTAR [Suspect]
     Indication: TYPE 1 DIABETES MELLITUS
     Dosage: START DATE: 1 MONTH DOSE:24 UNIT(S)
     Route: 048
  2. SOLOSTAR [Suspect]
     Indication: TYPE 1 DIABETES MELLITUS
     Dosage: START DATE: 1 MONTH
  3. PREDNISONE [Concomitant]
     Indication: RENAL FAILURE
  4. PROGRAF [Concomitant]
     Indication: RENAL FAILURE
  5. RENAGEL [Concomitant]
  6. IRON [Concomitant]
     Indication: IRON DEFICIENCY
  7. ARANESP [Concomitant]
     Indication: ANAEMIA

REACTIONS (1)
  - Renal failure [Unknown]
